FAERS Safety Report 6442036-5 (Version None)
Quarter: 2009Q4

REPORT INFORMATION
  Report Type: 
  Country: None (occurrence: None)
  Receive Date: 20091116
  Receipt Date: 20091104
  Transmission Date: 20100525
  Serious: Yes (Hospitalization)
  Sender: FDA-Public Use
  Company Number: TW-PFIZER INC-2008015098

PATIENT
  Age: 68 Year
  Sex: Female
  Weight: 48 kg

DRUGS (17)
  1. SUNITINIB MALATE [Suspect]
     Indication: GASTROINTESTINAL STROMAL TUMOUR
     Dosage: 37.5 MG, 1X/DAY
     Route: 048
     Dates: start: 20060120
  2. MYCOSTATIN [Concomitant]
     Route: 061
     Dates: start: 20080122, end: 20080204
  3. MEDROXYPROGESTERONE ACETATE [Concomitant]
     Route: 048
     Dates: start: 20080103, end: 20080214
  4. ALPRAZOLAM [Concomitant]
     Route: 048
     Dates: start: 20080110, end: 20080214
  5. ACETAMINOPHEN [Concomitant]
     Route: 048
     Dates: start: 20080123, end: 20080202
  6. CHLORZOXAZONE [Concomitant]
     Route: 048
     Dates: start: 20080123, end: 20080214
  7. MAGNESIUM OXIDE [Concomitant]
     Route: 048
     Dates: start: 20080129, end: 20080214
  8. DEXTROMETHORPHAN HYDROBROMIDE [Concomitant]
     Route: 048
     Dates: start: 20080123, end: 20080206
  9. INDOMETHACIN [Concomitant]
     Route: 061
     Dates: start: 20080123, end: 20080206
  10. LORAZEPAM [Concomitant]
     Route: 048
     Dates: start: 20080110, end: 20080204
  11. AMLODIPINE [Concomitant]
     Route: 048
     Dates: start: 20060815
  12. ALL OTHER THERAPEUTIC PRODUCTS [Concomitant]
     Route: 061
     Dates: start: 20061024
  13. DEXAMETHASONE [Concomitant]
     Route: 061
     Dates: start: 20080110, end: 20080214
  14. NICAMETATE DIHYDROGEN CITRATE [Concomitant]
     Route: 048
     Dates: start: 20080205, end: 20080214
  15. POTASSIUM CHLORIDE [Concomitant]
     Route: 048
     Dates: start: 20080129, end: 20080130
  16. SODIUM CHLORIDE [Concomitant]
     Route: 042
     Dates: start: 20080121, end: 20080129
  17. ESTAZOLAM [Concomitant]
     Route: 048
     Dates: start: 20080205, end: 20080214

REACTIONS (10)
  - BONE MARROW FAILURE [None]
  - HAEMATOCHEZIA [None]
  - HYPERTENSION [None]
  - HYPOGLYCAEMIA [None]
  - HYPOTHYROIDISM [None]
  - LARYNGEAL OEDEMA [None]
  - PALMAR-PLANTAR ERYTHRODYSAESTHESIA SYNDROME [None]
  - PNEUMONIA [None]
  - REFLUX OESOPHAGITIS [None]
  - SINUS BRADYCARDIA [None]
